FAERS Safety Report 6011353-5 (Version None)
Quarter: 2008Q4

REPORT INFORMATION
  Report Type: 
  Country: None (occurrence: None)
  Receive Date: 20081218
  Receipt Date: 20081201
  Transmission Date: 20090506
  Serious: Yes (Hospitalization)
  Sender: FDA-Public Use
  Company Number: ES-PFIZER INC-2008089125

PATIENT
  Age: 82 Year
  Sex: Female

DRUGS (7)
  1. NEURONTIN [Suspect]
     Indication: BACK PAIN
     Dosage: DAILY
     Route: 048
     Dates: start: 20061215
  2. MORPHINE SULFATE [Interacting]
     Indication: BACK PAIN
     Dates: start: 20061213, end: 20061230
  3. OMEPRAZOLE [Concomitant]
  4. ACOVIL [Concomitant]
  5. NEURONTIN [Concomitant]
     Route: 048
     Dates: end: 20061214
  6. NOVOLOG MIX 70/30 [Concomitant]
  7. PREVENCOR [Concomitant]
     Route: 048

REACTIONS (9)
  - ACUTE PSYCHOSIS [None]
  - CHOREA [None]
  - CONFUSIONAL STATE [None]
  - CREATININE RENAL CLEARANCE DECREASED [None]
  - DISORIENTATION [None]
  - DRUG INTERACTION [None]
  - HALLUCINATION [None]
  - MYOCLONUS [None]
  - SOMNOLENCE [None]
